FAERS Safety Report 8538092-0 (Version None)
Quarter: 2012Q3

REPORT INFORMATION
  Report Type: 
  Country: None (occurrence: None)
  Receive Date: 20120725
  Receipt Date: 20120718
  Transmission Date: 20120928
  Serious: No
  Sender: FDA-Public Use
  Company Number: US-009507513-1207USA007618

PATIENT

DRUGS (4)
  1. SINGULAIR [Suspect]
     Indication: ASTHMA
     Dosage: 10 MG, BID
     Route: 048
     Dates: start: 20120706, end: 20120701
  2. SINGULAIR [Suspect]
     Dosage: 10 UNK, UNK
     Route: 048
     Dates: start: 20120701, end: 20120716
  3. FOLIC ACID [Concomitant]
  4. CYANOCOBALAMIN [Concomitant]

REACTIONS (9)
  - ABDOMINAL DISTENSION [None]
  - ENERGY INCREASED [None]
  - SENSITIVITY OF TEETH [None]
  - WEIGHT INCREASED [None]
  - CONTUSION [None]
  - GASTROINTESTINAL DISORDER [None]
  - DIARRHOEA [None]
  - PARAESTHESIA [None]
  - PERSONALITY DISORDER [None]
